FAERS Safety Report 10215978 (Version 1)
Quarter: 2014Q2

REPORT INFORMATION
  Report Type: Spontaneous
  Country: GB (occurrence: GB)
  Receive Date: 20140604
  Receipt Date: 20140604
  Transmission Date: 20141212
  Serious: Yes (Hospitalization)
  Sender: FDA-Public Use
  Company Number: 2014SP002994

PATIENT
  Age: 39 Year
  Sex: Female

DRUGS (13)
  1. DOXORUBICIN [Suspect]
     Indication: HODGKIN^S DISEASE
     Route: 042
     Dates: start: 20140509, end: 20140509
  2. BLEOMYCIN [Suspect]
     Indication: HODGKIN^S DISEASE
     Route: 042
     Dates: start: 20140509, end: 20140509
  3. DACARBAZINE [Suspect]
     Indication: HODGKIN^S DISEASE
     Route: 042
     Dates: start: 20140509, end: 20140509
  4. VINBLASTINE [Suspect]
     Indication: HODGKIN^S DISEASE
     Route: 042
     Dates: start: 20140509, end: 20140509
  5. ALLOPURINOL [Concomitant]
     Route: 048
  6. CO-TRIMOXAZOLE [Concomitant]
     Route: 048
  7. CYCLIZINE [Concomitant]
  8. DEXAMETHASONE [Concomitant]
  9. DOCUSATE SODIUM [Concomitant]
  10. DOMPERIDONE [Concomitant]
  11. ONDANSETRON [Concomitant]
  12. PARACETAMOL [Concomitant]
     Route: 048
  13. TRAMADOL [Concomitant]
     Indication: HEADACHE

REACTIONS (3)
  - Migraine [None]
  - Photopsia [None]
  - Malaise [None]
